FAERS Safety Report 20231556 (Version 1)
Quarter: 2021Q4

REPORT INFORMATION
  Report Type: Spontaneous
  Country: US (occurrence: None)
  Receive Date: 20211223
  Receipt Date: 20211223
  Transmission Date: 20220303
  Serious: Yes (Hospitalization)
  Sender: FDA-Public Use
  Company Number: None

PATIENT
  Age: 70 Year
  Sex: Female
  Weight: 81.7 kg

DRUGS (1)
  1. TISAGENLECLEUCEL [Suspect]
     Active Substance: TISAGENLECLEUCEL
     Indication: Diffuse large B-cell lymphoma
     Dosage: OTHER FREQUENCY : ONCE;?
     Route: 042
     Dates: start: 20211102, end: 20211102

REACTIONS (32)
  - Confusional state [None]
  - Lethargy [None]
  - Abdominal pain [None]
  - Acute kidney injury [None]
  - Cytokine release syndrome [None]
  - Immune effector cell-associated neurotoxicity syndrome [None]
  - Shock [None]
  - Lactic acidosis [None]
  - Mental status changes [None]
  - Lung infiltration [None]
  - Aspiration [None]
  - Haemophagocytic lymphohistiocytosis [None]
  - Pyrexia [None]
  - Cytopenia [None]
  - Hypertriglyceridaemia [None]
  - Hypofibrinogenaemia [None]
  - Liver function test increased [None]
  - Serum ferritin increased [None]
  - Haematuria [None]
  - Anuria [None]
  - Polyomavirus-associated nephropathy [None]
  - Polyomavirus-associated nephropathy [None]
  - Hypervolaemia [None]
  - Haemodialysis [None]
  - Pancytopenia [None]
  - Melaena [None]
  - Aphasia [None]
  - Gastrointestinal haemorrhage [None]
  - Respiratory distress [None]
  - Mental disorder [None]
  - Apnoea [None]
  - Pulseless electrical activity [None]

NARRATIVE: CASE EVENT DATE: 20211102
